FAERS Safety Report 7604042-4 (Version None)
Quarter: 2011Q3

REPORT INFORMATION
  Report Type: 
  Country: None (occurrence: None)
  Receive Date: 20110711
  Receipt Date: 20110711
  Transmission Date: 20111222
  Serious: No
  Sender: FDA-Public Use
  Company Number: None

PATIENT
  Sex: Male
  Weight: 95.2554 kg

DRUGS (1)
  1. PROPECIA [Suspect]
     Indication: ANDROGENETIC ALOPECIA
     Dosage: 1MG PER DAY PO
     Route: 048
     Dates: start: 20070601, end: 20080301

REACTIONS (6)
  - POOR QUALITY SLEEP [None]
  - ASTHENIA [None]
  - ERECTILE DYSFUNCTION [None]
  - LOSS OF LIBIDO [None]
  - FEELING ABNORMAL [None]
  - MUSCLE ATROPHY [None]
